FAERS Safety Report 11256300 (Version 1)
Quarter: 2015Q3

REPORT INFORMATION
  Report Type: Spontaneous
  Country: IT (occurrence: IT)
  Receive Date: 20150709
  Receipt Date: 20150709
  Transmission Date: 20151125
  Serious: Yes (Hospitalization, Other)
  Sender: FDA-Public Use
  Company Number: PHHY2015IT079095

PATIENT
  Age: 41 Year
  Sex: Female

DRUGS (4)
  1. MOMENT 200 [Suspect]
     Active Substance: IBUPROFEN
     Indication: INTENTIONAL SELF-INJURY
     Dosage: 10 DF, ONCE/SINGLE
     Route: 048
     Dates: start: 20150611, end: 20150611
  2. HALDOL [Suspect]
     Active Substance: HALOPERIDOL
     Indication: INTENTIONAL SELF-INJURY
     Dosage: 15 ML, ONCE/SINGLE
     Route: 048
     Dates: start: 20150611, end: 20150611
  3. DELORAZEPAM [Suspect]
     Active Substance: DELORAZEPAM
     Indication: INTENTIONAL SELF-INJURY
     Dosage: 5 MG, ONCE/SINGLE
     Route: 048
     Dates: start: 20150611, end: 20150611
  4. ALPRAZOLAM. [Suspect]
     Active Substance: ALPRAZOLAM
     Indication: INTENTIONAL SELF-INJURY
     Dosage: 5 MG, ONCE/SINGLE
     Route: 048
     Dates: start: 20150611, end: 20150611

REACTIONS (2)
  - Sopor [Unknown]
  - Drug abuse [Unknown]

NARRATIVE: CASE EVENT DATE: 20150611
